FAERS Safety Report 16883463 (Version 10)
Quarter: 2020Q4

REPORT INFORMATION
  Report Type: Report from Study
  Country: JP (occurrence: JP)
  Receive Date: 20191004
  Receipt Date: 20201231
  Transmission Date: 20210113
  Serious: Yes (Other)
  Sender: FDA-Public Use
  Company Number: JP-ASTELLAS-2019JP021593

PATIENT
  Age: 81 Year
  Sex: Female
  Weight: 39 kg

DRUGS (5)
  1. LEVOFLOXACIN HEMIHYDRATE [Concomitant]
     Active Substance: LEVOFLOXACIN
     Indication: INFECTION PROPHYLAXIS
     Dosage: UNK UNK, UNKNOWN FREQ.
     Route: 048
  2. URSO [Concomitant]
     Active Substance: URSODIOL
     Indication: ALANINE AMINOTRANSFERASE INCREASED
  3. FLUCONAZOLE. [Concomitant]
     Active Substance: FLUCONAZOLE
     Indication: INFECTION PROPHYLAXIS
     Dosage: UNK UNK, UNKNOWN FREQ.
     Route: 048
     Dates: end: 20191226
  4. URSO [Concomitant]
     Active Substance: URSODIOL
     Indication: ASPARTATE AMINOTRANSFERASE INCREASED
     Dosage: UNK UNK, UNKNOWN FREQ.
     Route: 065
  5. ASP2215 [Suspect]
     Active Substance: GILTERITINIB
     Indication: ACUTE MYELOID LEUKAEMIA REFRACTORY
     Route: 048
     Dates: start: 20190906

REACTIONS (8)
  - Aspartate aminotransferase increased [Not Recovered/Not Resolved]
  - Alanine aminotransferase increased [Not Recovered/Not Resolved]
  - Acute myeloid leukaemia recurrent [Unknown]
  - Platelet count decreased [Recovered/Resolved]
  - Anaemia [Recovered/Resolved]
  - Blood alkaline phosphatase increased [Recovered/Resolved]
  - Blood lactate dehydrogenase increased [Not Recovered/Not Resolved]
  - Neutrophil count decreased [Recovered/Resolved]

NARRATIVE: CASE EVENT DATE: 20190906
